FAERS Safety Report 7443209-5 (Version None)
Quarter: 2011Q2

REPORT INFORMATION
  Report Type: 
  Country: None (occurrence: None)
  Receive Date: 20110428
  Receipt Date: 20110422
  Transmission Date: 20111010
  Serious: Yes (Other)
  Sender: FDA-Public Use
  Company Number: B0712345A

PATIENT
  Sex: Male
  Weight: 77 kg

DRUGS (11)
  1. VASOTEC [Concomitant]
  2. VOLTAREN [Concomitant]
  3. MULTIVITAMIN [Concomitant]
  4. MAVIK [Concomitant]
  5. AVANDIA [Suspect]
     Indication: DIABETES MELLITUS
     Route: 048
  6. ASPIRIN [Concomitant]
  7. LIPITOR [Concomitant]
  8. DIOVAN [Concomitant]
  9. TOPROL-XL [Concomitant]
  10. CHLORTHALIDONE [Concomitant]
  11. METFORMIN [Concomitant]

REACTIONS (3)
  - BLINDNESS [None]
  - RENAL ARTERY STENOSIS [None]
  - PERIPHERAL VASCULAR DISORDER [None]
